FAERS Safety Report 25419973 (Version 2)
Quarter: 2025Q2

REPORT INFORMATION
  Report Type: Spontaneous
  Country: US (occurrence: US)
  Receive Date: 20250610
  Receipt Date: 20250629
  Transmission Date: 20250717
  Serious: No
  Sender: SANOFI AVENTIS
  Company Number: US-SA-2025SA161514

PATIENT
  Age: 78 Year
  Sex: Male

DRUGS (2)
  1. ALTUVIIIO [Suspect]
     Active Substance: EFANESOCTOCOG ALFA
     Indication: Prophylaxis
     Route: 065
     Dates: start: 20250505
  2. HEMLIBRA [Concomitant]
     Active Substance: EMICIZUMAB-KXWH

REACTIONS (2)
  - Dizziness [Recovering/Resolving]
  - Metamorphopsia [Recovering/Resolving]

NARRATIVE: CASE EVENT DATE: 20250506
